FAERS Safety Report 6755635-8 (Version None)
Quarter: 2010Q2

REPORT INFORMATION
  Report Type: 
  Country: None (occurrence: None)
  Receive Date: 20100604
  Receipt Date: 20100514
  Transmission Date: 20101027
  Serious: Yes (Hospitalization, Other)
  Sender: FDA-Public Use
  Company Number: US-BAYER-201013349NA

PATIENT
  Age: 30 Year
  Sex: Female
  Weight: 45 kg

DRUGS (15)
  1. YASMIN [Suspect]
     Indication: DRUG USE FOR UNKNOWN INDICATION
     Route: 048
     Dates: start: 20010101, end: 20060101
  2. YAZ [Suspect]
     Indication: DRUG USE FOR UNKNOWN INDICATION
     Route: 048
     Dates: start: 20010101, end: 20060101
  3. ADVIL LIQUI-GELS [Concomitant]
     Dosage: TAKES EACH WEEK
     Route: 048
  4. EPOGEN [Concomitant]
     Dates: start: 20060101, end: 20060201
  5. NORVASC [Concomitant]
     Dosage: TOTAL DAILY DOSE: 5 MG  UNIT DOSE: 5 MG
     Route: 048
     Dates: start: 20060101, end: 20060201
  6. PROTONIX [Concomitant]
     Dosage: TOTAL DAILY DOSE: 40 MG  UNIT DOSE: 40 MG
     Route: 048
     Dates: start: 20060101, end: 20060201
  7. FERROUS SULFATE TAB [Concomitant]
     Dosage: TOTAL DAILY DOSE: 648 MG  UNIT DOSE: 324 MG
     Route: 048
     Dates: start: 20060101, end: 20060201
  8. PREDNISONE [Concomitant]
     Dosage: TOTAL DAILY DOSE: 40 MG  UNIT DOSE: 40 MG
     Route: 048
     Dates: start: 20060101, end: 20060201
  9. PREDNISONE [Concomitant]
     Dosage: TOTAL DAILY DOSE: 20 MG  UNIT DOSE: 20 MG
     Route: 048
     Dates: start: 20060201
  10. TOPROL-XL [Concomitant]
     Dosage: TOTAL DAILY DOSE: 100 MG  UNIT DOSE: 50 MG
     Route: 048
     Dates: start: 20060101, end: 20060201
  11. TOPROL-XL [Concomitant]
     Dosage: TOTAL DAILY DOSE: 25 MG  UNIT DOSE: 25 MG
     Route: 048
     Dates: start: 20060201
  12. PREVACID [Concomitant]
     Dosage: AS USED: 30 MG  UNIT DOSE: 30 MG
     Route: 048
     Dates: start: 20060201
  13. FOLIC ACID [Concomitant]
     Route: 065
     Dates: start: 20060201
  14. IRON [Concomitant]
     Route: 065
     Dates: start: 20060201
  15. XANAX [Concomitant]
     Route: 065
     Dates: start: 20060201

REACTIONS (10)
  - ABDOMINAL PAIN [None]
  - ANAEMIA [None]
  - CHILLS [None]
  - DEHYDRATION [None]
  - DIARRHOEA [None]
  - HAEMOLYTIC URAEMIC SYNDROME [None]
  - NAUSEA [None]
  - RENAL FAILURE [None]
  - RENAL FAILURE ACUTE [None]
  - VOMITING [None]
